FAERS Safety Report 4335161-6 (Version None)
Quarter: 2004Q1

REPORT INFORMATION
  Report Type: 
  Country: None (occurrence: None)
  Receive Date: 20040329
  Receipt Date: 20031204
  Transmission Date: 20041129
  Serious: No
  Sender: FDA-Public Use
  Company Number: 03P-163-0243788-00

PATIENT
  Age: 12 Year
  Sex: Female
  Weight: 39.0093 kg

DRUGS (1)
  1. HUMIRA [Suspect]
     Indication: JUVENILE ARTHRITIS
     Dosage: 40 MG, 1 IN 2 D, SUBCUTANEOUS
     Route: 058
     Dates: start: 20031101, end: 20031101

REACTIONS (2)
  - IMPETIGO [None]
  - INJECTION SITE BURNING [None]
